FAERS Safety Report 6527251-4 (Version None)
Quarter: 2010Q1

REPORT INFORMATION
  Report Type: 
  Country: None (occurrence: None)
  Receive Date: 20100104
  Receipt Date: 20100104
  Transmission Date: 20100710
  Serious: Yes (Hospitalization)
  Sender: FDA-Public Use
  Company Number: None

PATIENT
  Age: 34 Year
  Sex: Male
  Weight: 101.6057 kg

DRUGS (6)
  1. BEVACIZUMAB GENETECH [Suspect]
     Indication: GASTRIC CANCER
     Dosage: 750 MG EVERY 21 DAYS INTRAVENOUS
     Route: 042
     Dates: start: 20090415, end: 20090914
  2. DOCETAXEL [Suspect]
     Indication: GASTRIC CANCER
     Dosage: 150 MG EVERY 21 DAYS INTRAVENOUS
     Route: 042
     Dates: start: 20090415, end: 20090914
  3. NEXIUM [Concomitant]
  4. CARAFATE [Concomitant]
  5. ZYPREXA [Concomitant]
  6. ATIVAN [Concomitant]

REACTIONS (5)
  - DIZZINESS [None]
  - DYSPNOEA [None]
  - HAEMOGLOBIN DECREASED [None]
  - MELAENA [None]
  - TREATMENT NONCOMPLIANCE [None]
